FAERS Safety Report 9398978 (Version 1)
Quarter: 2013Q3

REPORT INFORMATION
  Report Type: Report from Study
  Country: US (occurrence: US)
  Receive Date: 20130714
  Receipt Date: 20130714
  Transmission Date: 20140515
  Serious: Yes (Death, Other)
  Sender: FDA-Public Use
  Company Number: US-TEVA-418511USA

PATIENT
  Age: 61 Year
  Sex: Male

DRUGS (1)
  1. CLOZAPINE [Suspect]
     Route: 048

REACTIONS (4)
  - Renal impairment [Fatal]
  - Renal tubular necrosis [Fatal]
  - Rhabdomyolysis [Fatal]
  - Leukopenia [Unknown]
